FAERS Safety Report 9513207 (Version 2)
Quarter: 2013Q3

REPORT INFORMATION
  Report Type: Spontaneous
  Country: US (occurrence: US)
  Receive Date: 20130910
  Receipt Date: 20130924
  Transmission Date: 20140515
  Serious: Yes (Other)
  Sender: FDA-Public Use
  Company Number: US-PFIZER INC-2013255774

PATIENT
  Sex: 0

DRUGS (1)
  1. TYGACIL [Suspect]
     Dosage: UNK

REACTIONS (1)
  - Pathogen resistance [Unknown]
